FAERS Safety Report 9711119 (Version 1)
Quarter: 2013Q4

REPORT INFORMATION
  Report Type: Spontaneous
  Country: US (occurrence: None)
  Receive Date: 20131125
  Receipt Date: 20131125
  Transmission Date: 20140711
  Serious: Yes (Other)
  Sender: FDA-Public Use
  Company Number: None

PATIENT
  Age: 63 Year
  Sex: Male
  Weight: 95.26 kg

DRUGS (1)
  1. LANTUS [Suspect]

REACTIONS (4)
  - Loss of consciousness [None]
  - Device malfunction [None]
  - Blood glucose false positive [None]
  - Product quality issue [None]
